FAERS Safety Report 19881913 (Version 1)
Quarter: 2021Q3

REPORT INFORMATION
  Report Type: Report from Study
  Country: None (occurrence: AR)
  Receive Date: 20210925
  Receipt Date: 20210925
  Transmission Date: 20211014
  Serious: Yes (Other)
  Sender: FDA-Public Use
  Company Number: AR-ABBVIE-21K-007-4024926-00

PATIENT
  Sex: Female

DRUGS (1)
  1. HUMIRA [Suspect]
     Active Substance: ADALIMUMAB
     Indication: PSORIATIC ARTHROPATHY
     Route: 058
     Dates: start: 20170106

REACTIONS (8)
  - Pulmonary pain [Recovering/Resolving]
  - Memory impairment [Recovering/Resolving]
  - Chest pain [Unknown]
  - Amnesia [Unknown]
  - Musculoskeletal chest pain [Recovering/Resolving]
  - COVID-19 [Recovered/Resolved with Sequelae]
  - Pneumonia [Recovering/Resolving]
  - Musculoskeletal stiffness [Not Recovered/Not Resolved]

NARRATIVE: CASE EVENT DATE: 2018
